FAERS Safety Report 15656659 (Version 4)
Quarter: 2019Q1

REPORT INFORMATION
  Report Type: Report from Study
  Country: US (occurrence: US)
  Receive Date: 20181126
  Receipt Date: 20190308
  Transmission Date: 20190417
  Serious: Yes (Other)
  Sender: FDA-Public Use
  Company Number: PHEH2018US049934

PATIENT
  Age: 85 Year
  Sex: Female

DRUGS (1)
  1. COSENTYX [Suspect]
     Active Substance: SECUKINUMAB
     Indication: PSORIASIS
     Dosage: 300 MG, QW
     Route: 058
     Dates: start: 20181031

REACTIONS (4)
  - Underdose [Unknown]
  - Tooth abscess [Unknown]
  - Toothache [Recovered/Resolved with Sequelae]
  - Device issue [Unknown]

NARRATIVE: CASE EVENT DATE: 20181121
